FAERS Safety Report 8334504 (Version 7)
Quarter: 2013Q4

REPORT INFORMATION
  Report Type: Spontaneous
  Country: US (occurrence: US)
  Receive Date: 20120112
  Receipt Date: 20131009
  Transmission Date: 20140711
  Serious: Yes (Hospitalization, Other)
  Sender: FDA-Public Use
  Company Number: US-ROCHE-1004367

PATIENT
  Age: 16 Year
  Sex: Male
  Weight: 83.99 kg

DRUGS (2)
  1. ACCUTANE [Suspect]
     Indication: ACNE
     Route: 048
     Dates: start: 19980309, end: 19980413
  2. ACCUTANE [Suspect]
     Dosage: 40 MG ALTERNATING WITH 80 MG PER DAY
     Route: 048
     Dates: start: 19980413, end: 199807

REACTIONS (10)
  - Colitis ulcerative [Unknown]
  - Depression [Unknown]
  - Amnesia [Unknown]
  - Inflammatory bowel disease [Unknown]
  - Suicidal ideation [Unknown]
  - Suicide attempt [Unknown]
  - Bipolar disorder [Unknown]
  - Panic attack [Unknown]
  - Dry skin [Unknown]
  - Haemorrhoids [Unknown]
